FAERS Safety Report 13053098 (Version 2)
Quarter: 2017Q1

REPORT INFORMATION
  Report Type: Spontaneous
  Country: AU (occurrence: AU)
  Receive Date: 20161222
  Receipt Date: 20170206
  Transmission Date: 20170428
  Serious: Yes (Life-Threatening, Hospitalization, Other)
  Sender: FDA-Public Use
  Company Number: AU-SUN PHARMACEUTICAL INDUSTRIES LTD-2016RR-129810

PATIENT
  Age: 27 Year
  Sex: Male

DRUGS (6)
  1. CHLORPROMAZINE. [Suspect]
     Active Substance: CHLORPROMAZINE
     Indication: PSYCHOMOTOR HYPERACTIVITY
     Dosage: 100 MG, UNK
     Route: 065
  2. HALOPERIDOL. [Suspect]
     Active Substance: HALOPERIDOL
     Indication: PSYCHOMOTOR HYPERACTIVITY
     Dosage: 10 MG, UNK
     Route: 048
  3. CANNABIS [Concomitant]
     Active Substance: CANNABIS SATIVA SUBSP. INDICA TOP
     Indication: PRODUCT USED FOR UNKNOWN INDICATION
     Dosage: UNK
     Route: 065
  4. RISPERIDONE. [Suspect]
     Active Substance: RISPERIDONE
     Indication: PSYCHOMOTOR HYPERACTIVITY
     Dosage: 1 MG, BID
     Route: 048
  5. METHAMPHETAMINE [Concomitant]
     Active Substance: METHAMPHETAMINE
     Indication: PRODUCT USED FOR UNKNOWN INDICATION
     Dosage: UNK
     Route: 065
  6. CLONAZEPAM. [Concomitant]
     Active Substance: CLONAZEPAM
     Indication: PSYCHOMOTOR HYPERACTIVITY
     Dosage: 2 MG, UNK
     Route: 048

REACTIONS (4)
  - Spasmodic dysphonia [Recovered/Resolved]
  - Limb deformity [Recovered/Resolved]
  - Torticollis [Recovered/Resolved]
  - Opisthotonus [Recovered/Resolved]
